FAERS Safety Report 4754407-3 (Version None)
Quarter: 2005Q3

REPORT INFORMATION
  Report Type: 
  Country: None (occurrence: None)
  Receive Date: 20050829
  Receipt Date: 20050818
  Transmission Date: 20060218
  Serious: Yes (Death, Hospitalization)
  Sender: FDA-Public Use
  Company Number: UG-BOEHRINGER INGELHEIM PHARMACEUTICALS, INC.-2005-DE-03227GD

PATIENT
  Age: 8 Year
  Sex: Male

DRUGS (3)
  1. NEVIRAPINE [Suspect]
     Indication: ACQUIRED IMMUNODEFICIENCY SYNDROME
     Dosage: 4 MG/KG TWICE DAILY
     Dates: start: 20040501
  2. STAVUDINE [Concomitant]
     Indication: ACQUIRED IMMUNODEFICIENCY SYNDROME
     Dates: start: 20040301
  3. LAMIVUDINE [Concomitant]
     Indication: ACQUIRED IMMUNODEFICIENCY SYNDROME
     Dates: start: 20040301

REACTIONS (5)
  - MENTAL STATUS CHANGES [None]
  - PYREXIA [None]
  - RESTLESSNESS [None]
  - SEPSIS [None]
  - STEVENS-JOHNSON SYNDROME [None]
